FAERS Safety Report 20290274 (Version 1)
Quarter: 2022Q1

REPORT INFORMATION
  Report Type: Spontaneous
  Country: US (occurrence: US)
  Receive Date: 20220104
  Receipt Date: 20220104
  Transmission Date: 20220423
  Serious: Yes (Other)
  Sender: FDA-Public Use
  Company Number: US-MYLANLABS-2022M1000384

PATIENT
  Age: 68 Year
  Sex: Male

DRUGS (8)
  1. CARBOPLATIN [Suspect]
     Active Substance: CARBOPLATIN
     Indication: Small cell lung cancer
     Dosage: TARGET 5 AUC
     Route: 065
  2. CARBOPLATIN [Suspect]
     Active Substance: CARBOPLATIN
     Dosage: DOSE REDUCED
     Route: 065
  3. ETOPOSIDE [Suspect]
     Active Substance: ETOPOSIDE
     Indication: Small cell lung cancer
     Dosage: 75 MILLIGRAM/SQ. METER
     Route: 065
  4. ETOPOSIDE [Suspect]
     Active Substance: ETOPOSIDE
     Dosage: DOSE REDUCED
     Route: 065
  5. TEMOZOLOMIDE [Suspect]
     Active Substance: TEMOZOLOMIDE
     Indication: Small cell lung cancer
     Dosage: ON DAYS 1-5 OF A 28-DAY CYCLE
     Route: 048
  6. ATEZOLIZUMAB [Suspect]
     Active Substance: ATEZOLIZUMAB
     Indication: Small cell lung cancer
     Dosage: UNK
     Route: 065
  7. ATEZOLIZUMAB [Suspect]
     Active Substance: ATEZOLIZUMAB
     Dosage: DOSE REDUCED
     Route: 065
  8. NIVOLUMAB [Suspect]
     Active Substance: NIVOLUMAB
     Indication: Small cell lung cancer
     Dosage: ON DAY 1 OF A 28 DAY CYCLE
     Route: 042

REACTIONS (6)
  - Thrombocytopenia [Unknown]
  - Lymphopenia [Unknown]
  - Rash [Unknown]
  - Weight decreased [Recovered/Resolved]
  - Presyncope [Recovered/Resolved]
  - Off label use [Unknown]
